FAERS Safety Report 16696280 (Version 3)
Quarter: 2019Q3

REPORT INFORMATION
  Report Type: Report from Study
  Country: US (occurrence: US)
  Receive Date: 20190813
  Receipt Date: 20190916
  Transmission Date: 20191004
  Serious: Yes (Hospitalization, Other)
  Sender: FDA-Public Use
  Company Number: US-JNJFOC-20190624829

PATIENT
  Age: 75 Year
  Sex: Female

DRUGS (4)
  1. IMBRUVICA [Suspect]
     Active Substance: IBRUTINIB
     Indication: CHRONIC LYMPHOCYTIC LEUKAEMIA
     Dosage: 420 MG, QD
     Route: 048
     Dates: start: 20190223
  2. IMBRUVICA [Suspect]
     Active Substance: IBRUTINIB
     Dosage: 420 MG, QD
     Route: 048
     Dates: start: 20190810
  3. ELIQUIS [Suspect]
     Active Substance: APIXABAN
     Indication: ATRIAL FIBRILLATION
     Route: 065
  4. IMBRUVICA [Suspect]
     Active Substance: IBRUTINIB
     Dosage: 420 MG, QD
     Route: 048
     Dates: start: 20190616

REACTIONS (9)
  - Peripheral swelling [Unknown]
  - Impaired healing [Not Recovered/Not Resolved]
  - Contusion [Unknown]
  - Vision blurred [Recovered/Resolved]
  - Joint swelling [Unknown]
  - Melanocytic naevus [Not Recovered/Not Resolved]
  - Fatigue [Unknown]
  - Atrial fibrillation [Unknown]
  - Laboratory test abnormal [Unknown]

NARRATIVE: CASE EVENT DATE: 2019
